FAERS Safety Report 4849730-8 (Version None)
Quarter: 2005Q4

REPORT INFORMATION
  Report Type: 
  Country: None (occurrence: None)
  Receive Date: 20051115
  Receipt Date: 20050913
  Transmission Date: 20060501
  Serious: No
  Sender: FDA-Public Use
  Company Number: S05-USA-04287-01

PATIENT
  Age: 63 Year
  Sex: Female

DRUGS (11)
  1. NAMENDA [Suspect]
     Indication: AMNESIA
     Dosage: 5 MG QD PO
     Route: 048
     Dates: start: 20050909
  2. NAMENDA [Suspect]
     Indication: CEREBROVASCULAR ACCIDENT
     Dosage: 5 MG QD PO
     Route: 048
     Dates: start: 20050909
  3. PLAVIX [Concomitant]
  4. EFFEXOR [Concomitant]
  5. POTASSIUM (POTASSIUM) [Concomitant]
  6. ISOSORBIDE (ISOSORBIDE) [Concomitant]
  7. COZAAR [Concomitant]
  8. TRIAMTERENE (TRIAMTERENE) [Concomitant]
  9. VERAPAMIL [Concomitant]
  10. MECLIZINE [Concomitant]
  11. CITRACAL (CALCIUM CITRATE) [Concomitant]

REACTIONS (3)
  - FATIGUE [None]
  - INSOMNIA [None]
  - TREMOR [None]
